FAERS Safety Report 5953553-6 (Version None)
Quarter: 2008Q4

REPORT INFORMATION
  Report Type: 
  Country: None (occurrence: None)
  Receive Date: 20081031
  Receipt Date: 20080610
  Transmission Date: 20090506
  Serious: No
  Sender: FDA-Public Use
  Company Number: 2008PV035720

PATIENT
  Age: 65 Year
  Sex: Female
  Weight: 87.9978 kg

DRUGS (6)
  1. SYMLIN [Suspect]
     Indication: DIABETES MELLITUS
     Dosage: 120 MCG; BID; SC
     Route: 058
     Dates: start: 20080501
  2. METFORMIN HCL [Concomitant]
  3. AVANDIA [Concomitant]
  4. PRANDIN [Concomitant]
  5. BYETTA [Concomitant]
  6. LIPITOR [Concomitant]

REACTIONS (1)
  - HUNGER [None]
